FAERS Safety Report 9527495 (Version 1)
Quarter: 2013Q1

REPORT INFORMATION
  Report Type: Spontaneous
  Country: US (occurrence: None)
  Receive Date: 20130314
  Receipt Date: 20130314
  Transmission Date: 20140127
  Serious: No
  Sender: FDA-Public Use
  Company Number: 1210USA000093

PATIENT
  Age: 54 Year
  Sex: Male

DRUGS (3)
  1. VICTRELIS (BOCEPREVIR) CAPSULE [Suspect]
     Indication: HEPATITIS C
     Dates: start: 20120921, end: 20130130
  2. RIBAVIRIN (RIBAVIRIN) CAPSULE [Suspect]
     Indication: HEPATITIS C
     Dates: start: 20120824, end: 20130130
  3. PEGASYS (PEGINTERFERON ALFA-2A) [Suspect]
     Indication: HEPATITIS C
     Dates: start: 20120824, end: 20130130

REACTIONS (9)
  - Vomiting [None]
  - Chills [None]
  - Headache [None]
  - Drug ineffective [None]
  - Nausea [None]
  - Pyrexia [None]
  - Influenza like illness [None]
  - Dry mouth [None]
  - Dizziness [None]
